FAERS Safety Report 19612790 (Version 2)
Quarter: 2021Q3

REPORT INFORMATION
  Report Type: Report from Study
  Country: US (occurrence: US)
  Receive Date: 20210727
  Receipt Date: 20210924
  Transmission Date: 20211014
  Serious: Yes (Hospitalization, Other)
  Sender: FDA-Public Use
  Company Number: US-SA-2019SA176588

PATIENT
  Age: 76 Year
  Sex: Female

DRUGS (10)
  1. DUPILUMAB [Suspect]
     Active Substance: DUPILUMAB
     Dosage: UNK
     Dates: start: 202003
  2. DUPILUMAB [Suspect]
     Active Substance: DUPILUMAB
     Indication: ASTHMA
     Dosage: 600 MG, 1X
     Route: 058
     Dates: start: 20190604, end: 20190604
  3. DUPILUMAB [Suspect]
     Active Substance: DUPILUMAB
     Dosage: 300 MG, QOW
     Route: 058
     Dates: start: 20190619, end: 20200208
  4. ALBUTEROL [SALBUTAMOL] [Concomitant]
     Active Substance: ALBUTEROL
  5. BUDESONIDE. [Concomitant]
     Active Substance: BUDESONIDE
  6. GABAPENTIN. [Concomitant]
     Active Substance: GABAPENTIN
     Dosage: 400 MG, BID
  7. BENADRYL [Concomitant]
     Active Substance: DIPHENHYDRAMINE HYDROCHLORIDE
     Dosage: 12.5 MG
  8. OXYGEN. [Concomitant]
     Active Substance: OXYGEN
     Dosage: 2 LITERS OF OXYGEN VIA NASAL CANNULA AT NIGHT AND PRN THROUGHOUT THE DAY
     Route: 045
     Dates: start: 2008
  9. PROPOFOL. [Concomitant]
     Active Substance: PROPOFOL
  10. FENTANYL. [Concomitant]
     Active Substance: FENTANYL
     Route: 042

REACTIONS (46)
  - Unevaluable event [Recovered/Resolved]
  - Headache [Recovering/Resolving]
  - Pyrexia [Recovered/Resolved]
  - Depressed level of consciousness [Recovered/Resolved]
  - Memory impairment [Not Recovered/Not Resolved]
  - Weight decreased [Not Recovered/Not Resolved]
  - Joint range of motion decreased [Recovering/Resolving]
  - Pyrexia [Not Recovered/Not Resolved]
  - Arthralgia [Recovering/Resolving]
  - Pyrexia [Not Recovered/Not Resolved]
  - Disturbance in attention [Recovered/Resolved]
  - Illness [Not Recovered/Not Resolved]
  - Product dose omission issue [Unknown]
  - Hunger [Recovered/Resolved]
  - Bladder operation [Unknown]
  - Psychomotor hyperactivity [Recovered/Resolved]
  - Anxiety [Recovered/Resolved]
  - Neck pain [Recovering/Resolving]
  - Pain of skin [Recovering/Resolving]
  - Malaise [Not Recovered/Not Resolved]
  - Rash [Not Recovered/Not Resolved]
  - Circulatory collapse [Recovered/Resolved]
  - Fall [Recovered/Resolved]
  - Malaise [Recovered/Resolved]
  - Erythema [Not Recovered/Not Resolved]
  - Thinking abnormal [Recovered/Resolved]
  - Pain in extremity [Recovered/Resolved]
  - Rhinorrhoea [Not Recovered/Not Resolved]
  - Diarrhoea [Not Recovered/Not Resolved]
  - Product use issue [Unknown]
  - Post procedural complication [Recovered/Resolved]
  - Dysstasia [Recovered/Resolved]
  - Inflammatory marker increased [Unknown]
  - Muscle spasms [Recovered/Resolved]
  - Fatigue [Recovered/Resolved]
  - Chest pain [Recovered/Resolved]
  - Influenza like illness [Not Recovered/Not Resolved]
  - Pain [Not Recovered/Not Resolved]
  - Feeling abnormal [Not Recovered/Not Resolved]
  - Bronchoscopy [Unknown]
  - Neoplasm skin [Recovering/Resolving]
  - Sleep disorder [Recovered/Resolved]
  - Herpes zoster [Not Recovered/Not Resolved]
  - Pain [Recovering/Resolving]
  - Pain [Recovered/Resolved]
  - Rash macular [Not Recovered/Not Resolved]

NARRATIVE: CASE EVENT DATE: 20190605
